FAERS Safety Report 4682185-5 (Version None)
Quarter: 2005Q2

REPORT INFORMATION
  Report Type: 
  Country: None (occurrence: None)
  Receive Date: 20050606
  Receipt Date: 20041109
  Transmission Date: 20051028
  Serious: Yes (Hospitalization)
  Sender: FDA-Public Use
  Company Number: US-SOLVAY-00204003982

PATIENT
  Age: 803 Month
  Sex: Male
  Weight: 91 kg

DRUGS (6)
  1. ANDROGEL [Suspect]
     Indication: BLOOD TESTOSTERONE DECREASED
     Dosage: DAILY DOSE: 5 GRAM(S)
     Route: 062
     Dates: start: 20040101
  2. LOTENSIN [Concomitant]
     Indication: HYPERTENSION
     Dosage: DAILY DOSE: 12.5 MILLIGRAM(S)
     Route: 048
     Dates: start: 19890101
  3. TOPROL-XL [Concomitant]
     Indication: CARDIAC DISORDER
     Dosage: DAILY DOSE: 75 MILLIGRAM(S)
     Route: 048
  4. PLAVIX [Concomitant]
     Indication: ANTICOAGULANT THERAPY
     Dosage: DAILY DOSE: 75 MILLIGRAM(S)
     Route: 048
  5. EFFEXOR [Concomitant]
     Indication: ANXIETY
     Dosage: DAILY DOSE: 150 MILLIGRAM(S)
     Route: 048
  6. LIPITOR [Concomitant]
     Indication: BLOOD CHOLESTEROL INCREASED
     Dosage: DAILY DOSE: 20 MILLIGRAM(S)
     Route: 048

REACTIONS (5)
  - DIARRHOEA [None]
  - MUSCULAR WEAKNESS [None]
  - ROTATOR CUFF REPAIR [None]
  - ROTATOR CUFF SYNDROME [None]
  - SHOULDER PAIN [None]
